FAERS Safety Report 6051837-7 (Version None)
Quarter: 2009Q1

REPORT INFORMATION
  Report Type: 
  Country: None (occurrence: None)
  Receive Date: 20090121
  Receipt Date: 20090121
  Transmission Date: 20090719
  Serious: Yes (Life-Threatening, Disabling, Other)
  Sender: FDA-Public Use
  Company Number: None

PATIENT
  Age: 36 Year
  Sex: Male
  Weight: 102.0593 kg

DRUGS (3)
  1. PROAIR HFA [Suspect]
  2. VENTOLIN [Suspect]
  3. PROVENTIL [Suspect]

REACTIONS (4)
  - DRUG EFFECT DECREASED [None]
  - HEADACHE [None]
  - INSOMNIA [None]
  - PRODUCT QUALITY ISSUE [None]
